FAERS Safety Report 20970821 (Version 1)
Quarter: 2022Q2

REPORT INFORMATION
  Report Type: Spontaneous
  Country: US (occurrence: US)
  Receive Date: 20220616
  Receipt Date: 20220616
  Transmission Date: 20220721
  Serious: No
  Sender: FDA-Public Use
  Company Number: US-SA-2022SA216087

PATIENT
  Sex: Female

DRUGS (2)
  1. SARCLISA [Suspect]
     Active Substance: ISATUXIMAB-IRFC
     Indication: Plasma cell myeloma
     Dosage: 500 MG (ON DAYS 1 AND 15 OF A 28 DAY CYCLE
     Route: 042
     Dates: start: 20220421
  2. SARCLISA [Suspect]
     Active Substance: ISATUXIMAB-IRFC
     Dosage: 170 MG (ON DAYS 1 AND 15 OF A 28 DAY CYCLE)
     Route: 042
     Dates: start: 20220421

REACTIONS (3)
  - Pain in extremity [Unknown]
  - Pain [Unknown]
  - Inappropriate schedule of product administration [Unknown]
